FAERS Safety Report 23362785 (Version 2)
Quarter: 2024Q4

REPORT INFORMATION
  Report Type: Spontaneous
  Country: US (occurrence: US)
  Receive Date: 20240103
  Receipt Date: 20241016
  Transmission Date: 20250115
  Serious: No
  Sender: SANOFI AVENTIS
  Company Number: US-SA-SAC20231226000669

PATIENT
  Age: 40 Year
  Sex: Female

DRUGS (13)
  1. DUPIXENT [Suspect]
     Active Substance: DUPILUMAB
     Indication: Dermatitis atopic
     Dosage: 1 DF, QOW
     Route: 058
     Dates: start: 20220727
  2. BOTOX [Concomitant]
     Active Substance: ONABOTULINUMTOXINA
  3. BUPROPION [Concomitant]
     Active Substance: BUPROPION
  4. BUSPAR [Concomitant]
     Active Substance: BUSPIRONE HYDROCHLORIDE
  5. CYMBALTA [Concomitant]
     Active Substance: DULOXETINE HYDROCHLORIDE
  6. DEXILANT [Concomitant]
     Active Substance: DEXLANSOPRAZOLE
  7. FISH OIL [Concomitant]
     Active Substance: FISH OIL
  8. GABAPENTIN [Concomitant]
     Active Substance: GABAPENTIN
  9. VITAMIN D3 [Concomitant]
     Active Substance: CHOLECALCIFEROL
  10. XANAX [Concomitant]
     Active Substance: ALPRAZOLAM
  11. FLONASE [Concomitant]
     Active Substance: FLUTICASONE PROPIONATE
  12. IRON [Concomitant]
     Active Substance: IRON
  13. RINVOQ [Concomitant]
     Active Substance: UPADACITINIB

REACTIONS (5)
  - Sleep disorder due to a general medical condition [Recovering/Resolving]
  - Discomfort [Unknown]
  - Pain of skin [Unknown]
  - Rash [Unknown]
  - Drug ineffective [Unknown]
